FAERS Safety Report 16744129 (Version 1)
Quarter: 2019Q3

REPORT INFORMATION
  Report Type: Other
  Country: GB (occurrence: GB)
  Receive Date: 20190827
  Receipt Date: 20190827
  Transmission Date: 20191005
  Serious: Yes (Hospitalization, Other)
  Sender: FDA-Public Use
  Company Number: GB-LUPIN PHARMACEUTICALS INC.-2019-05329

PATIENT
  Age: 71 Year
  Sex: Male

DRUGS (4)
  1. NYSTATIN. [Concomitant]
     Active Substance: NYSTATIN
     Indication: PRODUCT USED FOR UNKNOWN INDICATION
     Dosage: 100,000UNITS/ML ORAL SUSPENSIONT TO BE DROPPED INTO THE MOUTH FOUR TIMES A DAY. 28 ML
     Route: 048
     Dates: start: 20190104
  2. CHLORAMPHENICOL [Concomitant]
     Active Substance: CHLORAMPHENICOL
     Indication: PRODUCT USED FOR UNKNOWN INDICATION
     Dosage: 4 DROP, QD (IN THE AFFECTED EYE(S))
     Route: 047
     Dates: start: 20190117
  3. MICONAZOLE. [Concomitant]
     Active Substance: MICONAZOLE
     Indication: PRODUCT USED FOR UNKNOWN INDICATION
     Dosage: 20MG/G. AFTER MEALS
     Route: 065
     Dates: start: 20190107
  4. SERTRALINE HYDROCHLORIDE TABLETS [Suspect]
     Active Substance: SERTRALINE HYDROCHLORIDE
     Indication: PRODUCT USED FOR UNKNOWN INDICATION
     Dosage: 100 MILLIGRAM, QD
     Route: 065
     Dates: start: 20190124

REACTIONS (1)
  - Upper gastrointestinal haemorrhage [Recovered/Resolved]
